FAERS Safety Report 7330788 (Version 3)
Quarter: 2013Q1

REPORT INFORMATION
  Report Type: Spontaneous
  Country: US (occurrence: None)
  Receive Date: 20100224
  Receipt Date: 20130212
  Transmission Date: 20140127
  Serious: Yes (Life-Threatening, Hospitalization)
  Sender: FDA-Public Use
  Company Number: 2010022107

PATIENT
  Sex: Male

DRUGS (1)
  1. BERINERT [Suspect]
     Dosage: (500 OR 1000 IU INTRAVENOUS (NOT OTHERWISE SPECIFIED))
     Route: 042
     Dates: start: 20121109

REACTIONS (4)
  - PULMONARY EMBOLISM [None]
  - HEREDITARY ANGIOEDEMA [None]
  - CONDITION AGGRAVATED [None]
  - APPARENT LIFE THREATENING EVENT [None]
